FAERS Safety Report 4551285-2 (Version None)
Quarter: 2005Q1

REPORT INFORMATION
  Report Type: 
  Country: None (occurrence: None)
  Receive Date: 20050111
  Receipt Date: 20050111
  Transmission Date: 20050727
  Serious: No
  Sender: FDA-Public Use
  Company Number: None

PATIENT
  Age: 49 Year
  Sex: Female
  Weight: 50.8029 kg

DRUGS (1)
  1. DEPO-PROVERA [Suspect]
     Dosage: EVERY 10 WEEKS
     Dates: start: 20010717, end: 20041102

REACTIONS (1)
  - OSTEOPOROSIS [None]
